FAERS Safety Report 7594279-5 (Version None)
Quarter: 2011Q3

REPORT INFORMATION
  Report Type: 
  Country: None (occurrence: None)
  Receive Date: 20110706
  Receipt Date: 20110627
  Transmission Date: 20111222
  Serious: Yes (Hospitalization, Other)
  Sender: FDA-Public Use
  Company Number: US-ASTRAZENECA-2011SE37445

PATIENT
  Sex: Female

DRUGS (5)
  1. CLONAZEPAM [Concomitant]
  2. VITAMINES [Concomitant]
  3. SPIRONOLACTONE [Concomitant]
  4. BUPROPION HCL [Concomitant]
  5. NEXIUM [Suspect]
     Route: 048

REACTIONS (13)
  - TRAUMATIC ARTHRITIS [None]
  - ANKLE FRACTURE [None]
  - GASTRIC ULCER [None]
  - ARTHRALGIA [None]
  - SPINAL FRACTURE [None]
  - WEIGHT DECREASED [None]
  - BARRETT'S OESOPHAGUS [None]
  - PATELLA FRACTURE [None]
  - PAIN IN EXTREMITY [None]
  - SLEEP DISORDER DUE TO A GENERAL MEDICAL CONDITION [None]
  - TIBIA FRACTURE [None]
  - DYSPEPSIA [None]
  - GAIT DISTURBANCE [None]
